FAERS Safety Report 16558189 (Version 2)
Quarter: 2019Q3

REPORT INFORMATION
  Report Type: Spontaneous
  Country: US (occurrence: US)
  Receive Date: 20190711
  Receipt Date: 20190718
  Transmission Date: 20191004
  Serious: Yes (Other)
  Sender: FDA-Public Use
  Company Number: US-TORRENT-00008987

PATIENT
  Sex: Male

DRUGS (1)
  1. LOSARTAN. [Suspect]
     Active Substance: LOSARTAN
     Indication: PRODUCT USED FOR UNKNOWN INDICATION
     Dosage: FOR ALMOST A WHOLE YEAR
     Dates: start: 2018

REACTIONS (2)
  - Bladder cancer [Unknown]
  - Bladder neoplasm surgery [Unknown]

NARRATIVE: CASE EVENT DATE: 2018
